FAERS Safety Report 4919648-0 (Version None)
Quarter: 2006Q1

REPORT INFORMATION
  Report Type: 
  Country: None (occurrence: None)
  Receive Date: 20060216
  Receipt Date: 20060202
  Transmission Date: 20060701
  Serious: Yes (Life-Threatening)
  Sender: FDA-Public Use
  Company Number: 2006P1000094

PATIENT
  Age: 75 Year
  Sex: Male

DRUGS (5)
  1. RETEPLASE (RETEPLASE) [Suspect]
     Indication: ACUTE MYOCARDIAL INFARCTION
     Dosage: 20 IU
     Dates: start: 20040401, end: 20040401
  2. HEPARIN SODIUM [Suspect]
     Indication: ACUTE MYOCARDIAL INFARCTION
     Dosage: 1 ML; QD
     Dates: start: 20040401, end: 20040403
  3. ENOXAPARIN SODIUM [Suspect]
     Indication: ACUTE MYOCARDIAL INFARCTION
     Dosage: 60 MG;QD;SC
     Route: 058
     Dates: start: 20040401, end: 20040403
  4. ASPIRIN [Concomitant]
  5. ALLOPURINOL [Concomitant]

REACTIONS (1)
  - BRADYCARDIA [None]
